FAERS Safety Report 8200650-0 (Version None)
Quarter: 2012Q1

REPORT INFORMATION
  Report Type: 
  Country: None (occurrence: None)
  Receive Date: 20120312
  Receipt Date: 20120228
  Transmission Date: 20120608
  Serious: Yes (Hospitalization)
  Sender: FDA-Public Use
  Company Number: JP-UCBSA-052364

PATIENT
  Age: 11 Year
  Sex: Male
  Weight: 22.1 kg

DRUGS (18)
  1. KEPPRA [Suspect]
     Dosage: DAILY DOSE 850 MG/DAY
     Route: 048
     Dates: start: 20111003, end: 20111012
  2. KEPPRA [Suspect]
     Dosage: DAILY DOSE 630 MG/DAY(40 MG/KG/DAY)
     Route: 048
     Dates: start: 20110926, end: 20111002
  3. VALPROATE SODIUM [Concomitant]
     Dosage: GRADUALLY INCREASED TO 800 MG
     Route: 048
     Dates: end: 20010301
  4. KEPPRA [Suspect]
     Dosage: DAILY DOSE 850 MG/DAY
     Route: 048
     Dates: start: 20111003, end: 20111012
  5. KEPPRA [Suspect]
     Route: 048
     Dates: start: 20110701, end: 20110901
  6. VALPROATE SODIUM [Concomitant]
     Dosage: GRADUALLY INCREASED TO 800 MG
     Route: 048
     Dates: end: 20010301
  7. KEPPRA [Suspect]
     Indication: TONIC CONVULSION
     Dosage: DAILY DOSE 1000 MG/DAY
     Route: 048
     Dates: start: 20111013, end: 20111102
  8. CLONAZEPAM [Concomitant]
     Indication: EPILEPSY
     Dosage: DAILY DOSE 1.5 MG
     Route: 048
     Dates: start: 20010501
  9. KEPPRA [Suspect]
     Route: 048
     Dates: start: 20110901, end: 20110925
  10. KEPPRA [Suspect]
     Route: 048
     Dates: start: 20110701, end: 20110901
  11. LAMICTAL [Concomitant]
     Route: 048
  12. KEPPRA [Suspect]
     Indication: INFANTILE SPASMS
     Dosage: DAILY DOSE 1000 MG/DAY
     Route: 048
     Dates: start: 20111013, end: 20111102
  13. CARBAMAZEPINE [Concomitant]
     Indication: INFANTILE SPASMS
     Dosage: UNKNOWN DOSE
     Route: 048
  14. VALPROATE SODIUM [Concomitant]
     Indication: EPILEPSY
     Dosage: DAILY DOSE 800 MG/DAY
     Route: 048
     Dates: start: 20010301
  15. KEPPRA [Suspect]
     Dosage: DAILY DOSE 630 MG/DAY(40 MG/KG/DAY)
     Route: 048
     Dates: start: 20110926, end: 20111002
  16. KEPPRA [Suspect]
     Route: 048
     Dates: start: 20110901, end: 20110925
  17. VALPROATE SODIUM [Concomitant]
     Indication: INFANTILE SPASMS
     Dosage: DAILY DOSE 800 MG/DAY
     Route: 048
     Dates: start: 20010301
  18. CLONAZEPAM [Concomitant]
     Indication: INFANTILE SPASMS
     Dosage: DAILY DOSE 1.5 MG
     Route: 048
     Dates: start: 20010501

REACTIONS (4)
  - SOMNOLENCE [None]
  - STATUS EPILEPTICUS [None]
  - DECREASED ACTIVITY [None]
  - DECREASED APPETITE [None]
